FAERS Safety Report 10142231 (Version 1)
Quarter: 2014Q2

REPORT INFORMATION
  Report Type: Spontaneous
  Country: US (occurrence: US)
  Receive Date: 20140429
  Receipt Date: 20140429
  Transmission Date: 20141212
  Serious: No
  Sender: FDA-Public Use
  Company Number: US-TEVA-477946USA

PATIENT
  Sex: Female
  Weight: 53.12 kg

DRUGS (5)
  1. COPAXONE [Suspect]
     Indication: MULTIPLE SCLEROSIS
     Dates: start: 2008
  2. WELLBUTRIN [Concomitant]
     Indication: DEPRESSION
  3. XANAX [Concomitant]
     Indication: SLEEP DISORDER
  4. ADDERALL [Concomitant]
     Indication: COGNITIVE DISORDER
  5. ADDERALL [Concomitant]
     Indication: MEMORY IMPAIRMENT

REACTIONS (3)
  - Fatigue [Not Recovered/Not Resolved]
  - Fatigue [Not Recovered/Not Resolved]
  - Fatigue [Not Recovered/Not Resolved]
